FAERS Safety Report 5381568-8 (Version None)
Quarter: 2007Q2

REPORT INFORMATION
  Report Type: 
  Country: None (occurrence: None)
  Receive Date: 20070629
  Receipt Date: 20070413
  Transmission Date: 20071010
  Serious: Yes (Other)
  Sender: FDA-Public Use
  Company Number: A03200702621

PATIENT
  Age: 41 Year
  Sex: Male

DRUGS (2)
  1. AMBIEN CR [Suspect]
     Indication: SLEEP DISORDER
     Dosage: 12.5 MG PRN-ORAL
     Route: 048
  2. ATENOLOL [Concomitant]

REACTIONS (2)
  - AMNESIA [None]
  - SLEEP WALKING [None]
